FAERS Safety Report 24550129 (Version 1)
Quarter: 2024Q4

REPORT INFORMATION
  Report Type: Spontaneous
  Country: US (occurrence: US)
  Receive Date: 20241025
  Receipt Date: 20241025
  Transmission Date: 20250115
  Serious: No
  Sender: GLAXOSMITHKLINE
  Company Number: US-GSKCCFUS-Case-02127915_AE-117378

PATIENT
  Sex: Male

DRUGS (1)
  1. TRELEGY ELLIPTA [Suspect]
     Active Substance: FLUTICASONE FUROATE\UMECLIDINIUM BROMIDE\VILANTEROL TRIFENATATE
     Indication: Chronic obstructive pulmonary disease
     Dosage: 200/62.5/25MCG
     Route: 055
     Dates: start: 202409

REACTIONS (4)
  - Dysphonia [Not Recovered/Not Resolved]
  - Candida infection [Unknown]
  - Aphonia [Not Recovered/Not Resolved]
  - Incorrect dose administered [Unknown]
